FAERS Safety Report 12619642 (Version 1)
Quarter: 2016Q3

REPORT INFORMATION
  Report Type: Report from Study
  Country: BR (occurrence: BR)
  Receive Date: 20160803
  Receipt Date: 20160803
  Transmission Date: 20161109
  Serious: Yes (Other)
  Sender: FDA-Public Use
  Company Number: BR-ABBVIE-16P-020-1692315-00

PATIENT
  Sex: Male
  Weight: 88 kg

DRUGS (5)
  1. GLIFAGE [Concomitant]
     Active Substance: METFORMIN HYDROCHLORIDE
     Indication: DIABETES MELLITUS
     Dosage: ONCE A DAY, AFTER LUNCH; DAILY DOSE: 1 TABLET
     Dates: start: 2012
  2. ALLOPURINOL. [Concomitant]
     Active Substance: ALLOPURINOL
     Indication: BLOOD URIC ACID ABNORMAL
     Dosage: ONCE A DAY, AT DINNER; DAILY DOSE: 1 TABLET
     Dates: start: 2013
  3. SYNTHROID [Suspect]
     Active Substance: LEVOTHYROXINE SODIUM
     Dosage: FASTING, IN THE MORNING
     Route: 048
     Dates: start: 2015
  4. SYNTHROID [Suspect]
     Active Substance: LEVOTHYROXINE SODIUM
     Indication: HYPOTHYROIDISM
     Dosage: FASTING, IN THE MORNING (50 MCG DAILY)
     Route: 048
     Dates: start: 2010, end: 2015
  5. NAPRIX [Concomitant]
     Active Substance: RAMIPRIL
     Indication: BLOOD PRESSURE ABNORMAL
     Dosage: ONCE A DAY, AFTER BREAKFAST; DAILY DOSE: 1 TABLET
     Dates: start: 2010

REACTIONS (2)
  - Hernia [Unknown]
  - Therapy cessation [Unknown]

NARRATIVE: CASE EVENT DATE: 2015
